FAERS Safety Report 11952164 (Version 2)
Quarter: 2016Q2

REPORT INFORMATION
  Report Type: Report from Study
  Country: US (occurrence: US)
  Receive Date: 20160126
  Receipt Date: 20160421
  Transmission Date: 20160815
  Serious: No
  Sender: FDA-Public Use
  Company Number: US-AMGEN-USASL2016000940

PATIENT
  Age: 71 Year
  Sex: Female

DRUGS (1)
  1. REPATHA [Suspect]
     Active Substance: EVOLOCUMAB
     Indication: HYPERCHOLESTEROLAEMIA
     Dosage: 140 MG, Q2WK
     Route: 065
     Dates: start: 201412

REACTIONS (2)
  - Drug dose omission [Unknown]
  - Device failure [Unknown]
